FAERS Safety Report 17272648 (Version 3)
Quarter: 2020Q2

REPORT INFORMATION
  Report Type: Spontaneous
  Country: US (occurrence: US)
  Receive Date: 20200115
  Receipt Date: 20200413
  Transmission Date: 20200713
  Serious: No
  Sender: FDA-Public Use
  Company Number: US-PFIZER INC-2020016433

PATIENT
  Age: 46 Year
  Sex: Female
  Weight: 86.17 kg

DRUGS (8)
  1. DULOXETINE. [Concomitant]
     Active Substance: DULOXETINE
     Dosage: UNK
     Dates: start: 201906
  2. ENTYVIO [Concomitant]
     Active Substance: VEDOLIZUMAB
     Dosage: UNK
     Dates: start: 201806
  3. FOLIC ACID. [Concomitant]
     Active Substance: FOLIC ACID
     Dosage: UNK
     Dates: start: 201806
  4. CLONAZEPAM. [Concomitant]
     Active Substance: CLONAZEPAM
     Dosage: UNK
     Dates: start: 201906
  5. XELJANZ [Suspect]
     Active Substance: TOFACITINIB CITRATE
     Dosage: 5 MG, 2X/DAY
     Dates: start: 20200227
  6. XELJANZ [Suspect]
     Active Substance: TOFACITINIB CITRATE
     Indication: COLITIS ULCERATIVE
     Dosage: 10 MG, 2X/DAY
     Route: 048
     Dates: start: 20191101
  7. XELJANZ [Suspect]
     Active Substance: TOFACITINIB CITRATE
     Dosage: 10 MG, 2X/DAY
     Route: 048
     Dates: start: 201912
  8. FLEXERIL [CEFIXIME] [Concomitant]
     Active Substance: CEFIXIME
     Dosage: UNK
     Dates: start: 201907

REACTIONS (14)
  - Nasopharyngitis [Not Recovered/Not Resolved]
  - Pain [Unknown]
  - Discomfort [Recovered/Resolved]
  - Thirst [Unknown]
  - Anaemia [Unknown]
  - Nasal congestion [Unknown]
  - Headache [Unknown]
  - Abdominal distension [Not Recovered/Not Resolved]
  - Condition aggravated [Not Recovered/Not Resolved]
  - Dry skin [Unknown]
  - Dizziness [Unknown]
  - Amenorrhoea [Unknown]
  - Secretion discharge [Unknown]
  - Nausea [Unknown]

NARRATIVE: CASE EVENT DATE: 201912
